FAERS Safety Report 16275713 (Version 2)
Quarter: 2019Q2

REPORT INFORMATION
  Report Type: Spontaneous
  Country: BE (occurrence: BE)
  Receive Date: 20190504
  Receipt Date: 20190603
  Transmission Date: 20190711
  Serious: Yes (Other)
  Sender: FDA-Public Use
  Company Number: PHHY2019BE101260

PATIENT
  Age: 49 Year
  Sex: Male

DRUGS (2)
  1. GILENYA [Suspect]
     Active Substance: FINGOLIMOD HYDROCHLORIDE
     Indication: MULTIPLE SCLEROSIS
     Dosage: 0.5 MG, QD
     Route: 048
     Dates: start: 20171009
  2. BEFACT FORTE [Concomitant]
     Indication: PRODUCT USED FOR UNKNOWN INDICATION
     Dosage: 1 DF, QD
     Route: 065

REACTIONS (9)
  - Haemoglobin increased [Recovering/Resolving]
  - Bacterial test positive [Unknown]
  - Aspartate aminotransferase increased [Recovering/Resolving]
  - Gamma-glutamyltransferase increased [Recovering/Resolving]
  - Lymphocyte count decreased [Recovering/Resolving]
  - Lymphocyte percentage decreased [Recovering/Resolving]
  - Cutaneous sarcoidosis [Unknown]
  - Alanine aminotransferase increased [Recovering/Resolving]
  - Haematocrit increased [Recovering/Resolving]

NARRATIVE: CASE EVENT DATE: 20190104
